FAERS Safety Report 7716378-7 (Version None)
Quarter: 2011Q3

REPORT INFORMATION
  Report Type: 
  Country: None (occurrence: None)
  Receive Date: 20110829
  Receipt Date: 20110822
  Transmission Date: 20111222
  Serious: Yes (Hospitalization)
  Sender: FDA-Public Use
  Company Number: US-MERCK-1108USA02802

PATIENT
  Sex: Male

DRUGS (4)
  1. JANUVIA [Suspect]
     Route: 048
  2. LANTUS [Concomitant]
     Route: 065
  3. LINAGLIPTIN [Concomitant]
     Route: 065
  4. MORPHINE [Concomitant]
     Route: 065

REACTIONS (2)
  - RENAL FAILURE [None]
  - BLOOD GLUCOSE FLUCTUATION [None]
